FAERS Safety Report 20308153 (Version 1)
Quarter: 2022Q1

REPORT INFORMATION
  Report Type: Spontaneous
  Country: NL (occurrence: NL)
  Receive Date: 20220107
  Receipt Date: 20220107
  Transmission Date: 20220424
  Serious: Yes (Other)
  Sender: FDA-Public Use
  Company Number: NL-AUROBINDO-AUR-APL-2021-047811

PATIENT
  Age: 86 Year
  Sex: Female

DRUGS (10)
  1. MINOCYCLINE HYDROCHLORIDE [Suspect]
     Active Substance: MINOCYCLINE HYDROCHLORIDE
     Indication: Skin toxicity
     Dosage: 100 MILLIGRAM, ONCE A DAY ((1DD1, FOR EIGHT MONTHS)
     Route: 065
  2. SIMVASTATIN [Interacting]
     Active Substance: SIMVASTATIN
     Indication: Product used for unknown indication
     Dosage: 40 MILLIGRAM, ONCE A DAY (1DD1, FOR TEN YEARS)
     Route: 065
  3. ASPIRIN [Concomitant]
     Active Substance: ASPIRIN
     Indication: Product used for unknown indication
     Dosage: 80 MILLIGRAM, ONCE A DAY
     Route: 065
  4. ERLOTINIB [Interacting]
     Active Substance: ERLOTINIB
     Indication: Non-small cell lung cancer
     Dosage: 150 MILLIGRAM, ONCE A DAY
     Route: 048
  5. ERLOTINIB [Interacting]
     Active Substance: ERLOTINIB
     Dosage: 100 MILLIGRAM, ONCE A DAY
     Route: 065
  6. DOXYCYCLINE [Concomitant]
     Active Substance: DOXYCYCLINE
     Indication: Product used for unknown indication
     Dosage: 100 MILLIGRAM, ONCE A DAY
     Route: 065
  7. METOPROLOL [Concomitant]
     Active Substance: METOPROLOL
     Indication: Product used for unknown indication
     Dosage: 50 MILLIGRAM, ONCE A DAY ((1DD1, FOR TEN YEARS) )
     Route: 065
  8. OMEPRAZOLE [Concomitant]
     Active Substance: OMEPRAZOLE
     Indication: Gastrooesophageal reflux disease
     Dosage: 40 MILLIGRAM, ONCE A DAY((1DD1, FOR TEN YEARS) )
     Route: 065
  9. OMEPRAZOLE [Concomitant]
     Active Substance: OMEPRAZOLE
     Dosage: 20 MILLIGRAM ((1DD1, FOR 7 YEARS) )
     Route: 065
  10. VITAMIN D [Concomitant]
     Active Substance: VITAMIN D NOS
     Indication: Product used for unknown indication
     Dosage: 800 INTERNATIONAL UNIT, ONCE A DAY
     Route: 065

REACTIONS (7)
  - Myalgia [Recovered/Resolved]
  - Loss of personal independence in daily activities [Recovering/Resolving]
  - Skin hyperpigmentation [Recovering/Resolving]
  - Fatigue [Recovering/Resolving]
  - Rash pustular [Recovering/Resolving]
  - Nausea [Recovering/Resolving]
  - Drug interaction [Unknown]
